FAERS Safety Report 11445770 (Version 2)
Quarter: 2015Q4

REPORT INFORMATION
  Report Type: Report from Study
  Country: DE (occurrence: DE)
  Receive Date: 20150902
  Receipt Date: 20151119
  Transmission Date: 20160304
  Serious: Yes (Death, Hospitalization)
  Sender: FDA-Public Use
  Company Number: DE-CELGENE-062-21660-14030106

PATIENT
  Age: 60 Year
  Sex: Female
  Weight: 76 kg

DRUGS (19)
  1. L-THYROXIN [Concomitant]
     Active Substance: LEVOTHYROXINE SODIUM
     Indication: PRODUCT USED FOR UNKNOWN INDICATION
     Dosage: 100 MILLIGRAM
     Route: 065
     Dates: start: 1989
  2. LERCANIPIDIN [Concomitant]
     Indication: PRODUCT USED FOR UNKNOWN INDICATION
     Dosage: 100 MICROGRAM
     Route: 065
     Dates: start: 2007
  3. DIFLUCAN [Concomitant]
     Active Substance: FLUCONAZOLE
     Indication: MUCOSAL INFLAMMATION
     Route: 048
     Dates: start: 20140325
  4. AMPHOMORONAL [Concomitant]
     Indication: MUCOSAL INFLAMMATION
     Route: 065
     Dates: start: 20140302, end: 20140325
  5. CANDIO HERMAL [Concomitant]
     Indication: MUCOSAL INFLAMMATION
     Route: 065
     Dates: start: 20140325
  6. HYDROMORPHON [Concomitant]
     Active Substance: HYDROMORPHONE
     Indication: MUCOSAL INFLAMMATION
     Route: 065
     Dates: start: 20140325
  7. ABRAXANE [Suspect]
     Active Substance: PACLITAXEL
     Indication: BREAST CANCER METASTATIC
     Route: 041
     Dates: start: 20140224, end: 20140224
  8. SIMVASTATIN. [Concomitant]
     Active Substance: SIMVASTATIN
     Indication: PRODUCT USED FOR UNKNOWN INDICATION
     Route: 065
     Dates: start: 2007
  9. ABRAXANE [Suspect]
     Active Substance: PACLITAXEL
     Route: 041
     Dates: start: 20140318
  10. ABRAXANE [Suspect]
     Active Substance: PACLITAXEL
     Route: 041
     Dates: start: 20140325
  11. RAMILOK [Concomitant]
     Indication: HYPERTENSION
     Dosage: 5/25MG
     Route: 065
     Dates: start: 2007
  12. LIDOCAINE. [Concomitant]
     Active Substance: LIDOCAINE
     Indication: MUCOSAL INFLAMMATION
     Route: 065
     Dates: start: 20140302, end: 20140325
  13. RED BLOOD CELLS [Concomitant]
     Active Substance: HUMAN RED BLOOD CELL
     Indication: PRODUCT USED FOR UNKNOWN INDICATION
     Route: 065
  14. BISOPROLOL [Concomitant]
     Active Substance: BISOPROLOL
     Indication: HYPERTENSION
     Route: 065
     Dates: start: 2007
  15. CALCIGEN [Concomitant]
     Indication: PROPHYLAXIS
     Route: 065
     Dates: start: 2013
  16. LETROZOL [Concomitant]
     Active Substance: LETROZOLE
     Indication: METASTASES TO LIVER
     Route: 065
     Dates: start: 2013
  17. SPIRO [Concomitant]
     Indication: OEDEMA PERIPHERAL
     Dosage: 50/20MG
     Route: 065
     Dates: start: 20140325
  18. ZOMETA [Concomitant]
     Active Substance: ZOLEDRONIC ACID
     Indication: PRODUCT USED FOR UNKNOWN INDICATION
     Route: 065
  19. ASPIRIN. [Concomitant]
     Active Substance: ASPIRIN
     Indication: HYPERTENSION
     Dosage: 5 MILLIGRAM
     Route: 065
     Dates: start: 2007

REACTIONS (6)
  - Oral candidiasis [Recovered/Resolved]
  - Febrile infection [Recovered/Resolved]
  - Leukopenia [Recovered/Resolved]
  - Breast cancer metastatic [Fatal]
  - Febrile neutropenia [Recovered/Resolved]
  - Mucosal inflammation [Recovered/Resolved]

NARRATIVE: CASE EVENT DATE: 20140302
